FAERS Safety Report 15178729 (Version 9)
Quarter: 2021Q2

REPORT INFORMATION
  Report Type: Spontaneous
  Country: GB (occurrence: GB)
  Receive Date: 20180722
  Receipt Date: 20210504
  Transmission Date: 20210716
  Serious: Yes (Hospitalization)
  Sender: FDA-Public Use
  Company Number: PHHY2015GB178050

PATIENT
  Age: 43 Year
  Sex: Female

DRUGS (37)
  1. PACLITAXEL. [Suspect]
     Active Substance: PACLITAXEL
     Dosage: 450 MG, Q3W
     Route: 042
     Dates: start: 20150730, end: 20150820
  2. HERCEPTIN [Suspect]
     Active Substance: TRASTUZUMAB
     Indication: BREAST CANCER METASTATIC
     Dosage: 567 MG, QD
     Route: 042
     Dates: start: 20150616, end: 20150616
  3. TRAMADOL. [Concomitant]
     Active Substance: TRAMADOL
     Dosage: 50 MG,QD
     Route: 048
  4. PACLITAXEL. [Suspect]
     Active Substance: PACLITAXEL
     Dosage: 340 MG, Q3W
     Route: 042
     Dates: start: 20150910, end: 20150910
  5. PACLITAXEL. [Suspect]
     Active Substance: PACLITAXEL
     Dosage: 340 MG, Q3W
     Route: 042
     Dates: start: 20150910, end: 20151022
  6. TRASTUZUMAB. [Suspect]
     Active Substance: TRASTUZUMAB
     Dosage: 567 MG (LOADING DOSE) (TOTAL)
     Route: 041
     Dates: start: 20150616, end: 20150616
  7. TRASTUZUMAB. [Suspect]
     Active Substance: TRASTUZUMAB
     Dosage: 420MG, Q3W (MAINTAINANCE DOSE.)
     Route: 042
     Dates: start: 20150709, end: 20150709
  8. PERTUZUMAB. [Suspect]
     Active Substance: PERTUZUMAB
     Dosage: 420 MG, Q3W (MAINTAINANCE DOSE)
     Route: 042
     Dates: start: 20150709
  9. CHLORPHENAMINE [Concomitant]
     Active Substance: CHLORPHENIRAMINE MALEATE
     Indication: PRODUCT USED FOR UNKNOWN INDICATION
     Dosage: 10MG
     Route: 042
     Dates: start: 20150709, end: 20150709
  10. COCODAMOL [Concomitant]
     Active Substance: ACETAMINOPHEN\CODEINE PHOSPHATE
     Indication: PRODUCT USED FOR UNKNOWN INDICATION
     Dosage: 2000 MG, QD
     Route: 048
  11. CO?AMOXICLAV [Concomitant]
     Active Substance: AMOXICILLIN\CLAVULANATE POTASSIUM
     Indication: COUGH
     Dosage: UNK, COUGH WITH YELLOW SPUTUM
     Route: 048
     Dates: start: 20180110, end: 20180117
  12. DOCETAXEL. [Suspect]
     Active Substance: DOCETAXEL
     Dosage: 130 MG, Q3W
     Route: 042
     Dates: start: 20150709, end: 20150709
  13. PACLITAXEL. [Suspect]
     Active Substance: PACLITAXEL
     Dosage: LOADING DOSE (450 MG)
     Route: 042
     Dates: start: 20150730, end: 20150730
  14. PACLITAXEL. [Suspect]
     Active Substance: PACLITAXEL
     Dosage: 340 MG, TIW
     Route: 042
     Dates: start: 20150820, end: 20150820
  15. PACLITAXEL. [Suspect]
     Active Substance: PACLITAXEL
     Dosage: 450 MG,3 (450 MG)
     Route: 042
     Dates: start: 20150730
  16. TRASTUZUMAB. [Suspect]
     Active Substance: TRASTUZUMAB
     Dosage: 987 MG, UNK, CUMULATIVE DOSE
     Route: 065
  17. HERCEPTIN [Suspect]
     Active Substance: TRASTUZUMAB
     Dosage: 420 MG, BIW (420 MG, Q3W)
     Route: 042
     Dates: start: 20150709, end: 20150709
  18. HERCEPTIN [Suspect]
     Active Substance: TRASTUZUMAB
     Dosage: 420 MG, Q3W (MAINTAINANCE DOSE)
     Route: 042
     Dates: start: 20150709
  19. TRAMADOL. [Concomitant]
     Active Substance: TRAMADOL
     Indication: PAIN
     Dosage: 100 MG, QD
     Route: 048
  20. METFORMIN [Concomitant]
     Active Substance: METFORMIN HYDROCHLORIDE
     Indication: DIABETES MELLITUS
     Dosage: 2 G, QD
     Route: 048
  21. TRASTUZUMAB. [Suspect]
     Active Substance: TRASTUZUMAB
     Dosage: 420 MG, TIW (MAINTAINANCE DOSE)
     Route: 042
     Dates: start: 20150709, end: 20150709
  22. DOMPERIDONE [Concomitant]
     Active Substance: DOMPERIDONE
     Indication: PRODUCT USED FOR UNKNOWN INDICATION
     Dosage: 10 MG,QD
     Route: 048
     Dates: start: 20150709
  23. DOMPERIDONE [Concomitant]
     Active Substance: DOMPERIDONE
     Dosage: 30 MG, QD
     Route: 048
     Dates: start: 20190709
  24. DOCETAXEL. [Suspect]
     Active Substance: DOCETAXEL
     Indication: BREAST CANCER METASTATIC
     Dosage: 130 MG, Q3W
     Route: 042
     Dates: start: 20150616, end: 20150616
  25. DOCETAXEL. [Suspect]
     Active Substance: DOCETAXEL
     Dosage: 130 MG, Q3W
     Route: 042
     Dates: start: 20150616, end: 20150709
  26. PACLITAXEL. [Suspect]
     Active Substance: PACLITAXEL
     Dosage: 450 MG, Q3W
     Route: 042
     Dates: start: 20150820, end: 20150820
  27. TRASTUZUMAB. [Suspect]
     Active Substance: TRASTUZUMAB
     Indication: BREAST CANCER METASTATIC
     Dosage: 567 MG, QD (LOADING DOSE)
     Route: 041
     Dates: start: 20150616, end: 20150616
  28. DOCETAXEL. [Suspect]
     Active Substance: DOCETAXEL
     Dosage: 260 MG, UNK, CUMULATIVE DOSE
     Route: 065
  29. PACLITAXEL. [Suspect]
     Active Substance: PACLITAXEL
     Dosage: 450 MG, BIW (450 MG, Q3W)
     Route: 042
     Dates: start: 20150820, end: 20150820
  30. PERTUZUMAB. [Suspect]
     Active Substance: PERTUZUMAB
     Indication: BREAST CANCER METASTATIC
     Dosage: 840 MG, QD, LOADING DOSE
     Route: 042
     Dates: start: 20150615, end: 20150615
  31. PACLITAXEL. [Suspect]
     Active Substance: PACLITAXEL
     Indication: BREAST CANCER METASTATIC
     Dosage: 450 MG, QW3 (LOADING DOSE)
     Route: 042
     Dates: start: 20150730, end: 20150730
  32. METFORMIN [Concomitant]
     Active Substance: METFORMIN HYDROCHLORIDE
     Dosage: 1 G,QD
     Route: 048
  33. HYDROCORTISONE. [Concomitant]
     Active Substance: HYDROCORTISONE
     Indication: PRODUCT USED FOR UNKNOWN INDICATION
     Dosage: 100MG
     Route: 042
     Dates: start: 20150709, end: 20150709
  34. COCODAMOL [Concomitant]
     Active Substance: ACETAMINOPHEN\CODEINE PHOSPHATE
     Dosage: 500 MG,QD
     Route: 048
  35. PACLITAXEL. [Suspect]
     Active Substance: PACLITAXEL
     Dosage: 340 MG, Q3W
     Route: 042
     Dates: start: 20151022, end: 20151022
  36. TRASTUZUMAB. [Suspect]
     Active Substance: TRASTUZUMAB
     Dosage: 420 MG, Q3W (MAINTENANCE DOSE)
     Route: 042
     Dates: start: 20150709
  37. HERCEPTIN [Suspect]
     Active Substance: TRASTUZUMAB
     Dosage: 420 MG, Q3W
     Route: 042
     Dates: start: 20150709, end: 20150709

REACTIONS (7)
  - Fatigue [Recovered/Resolved]
  - Diarrhoea [Recovered/Resolved]
  - Febrile neutropenia [Recovered/Resolved]
  - Swelling [Not Recovered/Not Resolved]
  - Chest pain [Not Recovered/Not Resolved]
  - Mucosal inflammation [Recovered/Resolved]
  - Neuropathy peripheral [Recovered/Resolved]

NARRATIVE: CASE EVENT DATE: 20150908
